FAERS Safety Report 4993035-1 (Version None)
Quarter: 2006Q1

REPORT INFORMATION
  Report Type: 
  Country: None (occurrence: None)
  Receive Date: 20060313
  Receipt Date: 20060103
  Transmission Date: 20060701
  Serious: No
  Sender: FDA-Public Use
  Company Number: 2006-BP-00018BP

PATIENT
  Sex: Male

DRUGS (1)
  1. SPIRIVA [Suspect]
     Indication: CHRONIC OBSTRUCTIVE PULMONARY DISEASE
     Dosage: 18 MCG (18 MCG), IH
     Route: 055
     Dates: start: 20050102

REACTIONS (1)
  - PRODUCTIVE COUGH [None]
